FAERS Safety Report 14723465 (Version 1)
Quarter: 2018Q2

REPORT INFORMATION
  Report Type: Spontaneous
  Country: PT (occurrence: PT)
  Receive Date: 20180405
  Receipt Date: 20180405
  Transmission Date: 20180711
  Serious: Yes (Death, Hospitalization)
  Sender: FDA-Public Use
  Company Number: PHHY2018PT058111

PATIENT
  Age: 79 Year
  Sex: Male

DRUGS (2)
  1. NEPARVIS [Suspect]
     Active Substance: SACUBITRIL\VALSARTAN
     Dosage: AFTTER THREE FORTH OF SACUBITRIL/VALSARTAN
     Route: 065
  2. NEPARVIS [Suspect]
     Active Substance: SACUBITRIL\VALSARTAN
     Indication: PRODUCT USED FOR UNKNOWN INDICATION
     Dosage: 50 (24/26), UNK
     Route: 065

REACTIONS (5)
  - Atrial fibrillation [Unknown]
  - Incorrect dose administered [Unknown]
  - Ventricular arrhythmia [Fatal]
  - Forced expiratory volume increased [Unknown]
  - Blood creatinine increased [Unknown]
